FAERS Safety Report 24360539 (Version 1)
Quarter: 2024Q3

REPORT INFORMATION
  Report Type: Report from Study
  Country: US (occurrence: US)
  Receive Date: 20240925
  Receipt Date: 20240925
  Transmission Date: 20241017
  Serious: Yes (Death)
  Sender: AMNEAL
  Company Number: US-AMNEAL PHARMACEUTICALS-2024-AMRX-03470

PATIENT
  Sex: Male

DRUGS (5)
  1. CARBIDOPA\LEVODOPA [Suspect]
     Active Substance: CARBIDOPA\LEVODOPA
     Indication: Product used for unknown indication
     Dosage: (48.75-195 MG) 1 CAPSULES, 3 /DAY
     Route: 048
  2. CARBIDOPA\LEVODOPA [Suspect]
     Active Substance: CARBIDOPA\LEVODOPA
     Dosage: 23.75-95MG 1 CAPSULE BY MOUTH THREE TIMES A DAY AND 48.75- 195MG- 3 CAPSULES BY MOUTH THREE TIMES DA
     Route: 048
     Dates: start: 20230403
  3. CARBIDOPA\LEVODOPA [Suspect]
     Active Substance: CARBIDOPA\LEVODOPA
     Dosage: 23.75-95MG 1 CAPSULE BY MOUTH THREE TIMES A DAY AND 48.75- 195MG- 2 CAPSULES BY MOUTH THREE TIMES DA
     Route: 048
  4. CARBIDOPA\LEVODOPA [Suspect]
     Active Substance: CARBIDOPA\LEVODOPA
     Dosage: 23.75-95MG 1 CAPSULE BY MOUTH THREE TIMES A DAY AND 48.75- 195MG- 3 CAPSULES BY MOUTH THREE TIMES DA
     Route: 048
     Dates: start: 20240625
  5. CARBIDOPA\LEVODOPA [Suspect]
     Active Substance: CARBIDOPA\LEVODOPA
     Dosage: (23.75-95MG, 48.75- 195MG) 1 CAPSULE BY MOUTH THREE TIMES A DAY
     Route: 048

REACTIONS (1)
  - Dementia [Fatal]
